FAERS Safety Report 19852499 (Version 1)
Quarter: 2021Q3

REPORT INFORMATION
  Report Type: Spontaneous
  Country: US (occurrence: US)
  Receive Date: 20210919
  Receipt Date: 20210919
  Transmission Date: 20211014
  Serious: Yes (Death, Other)
  Sender: FDA-Public Use
  Company Number: US-PERRIGO-21US022885

PATIENT
  Age: 86 Year
  Sex: Female

DRUGS (2)
  1. RANITIDINE HYDROCHLORIDE (852) [Suspect]
     Active Substance: RANITIDINE HYDROCHLORIDE
     Indication: DYSPEPSIA
  2. RANITIDINE HYDROCHLORIDE (852) [Suspect]
     Active Substance: RANITIDINE HYDROCHLORIDE
     Indication: GASTROOESOPHAGEAL REFLUX DISEASE
     Dosage: DOSE FREQUENCY: OCCASIONAL
     Route: 048
     Dates: start: 200611, end: 201509

REACTIONS (6)
  - Pancreatic carcinoma [Fatal]
  - Gastric cancer [Fatal]
  - Hepatic cancer [Fatal]
  - Gastrointestinal carcinoma [Fatal]
  - Small intestine carcinoma [Fatal]
  - Ovarian cancer [Fatal]

NARRATIVE: CASE EVENT DATE: 20140101
